FAERS Safety Report 18453980 (Version 1)
Quarter: 2020Q4

REPORT INFORMATION
  Report Type: Spontaneous
  Country: US (occurrence: US)
  Receive Date: 20201102
  Receipt Date: 20201102
  Transmission Date: 20210114
  Serious: Yes (Death, Hospitalization, Other)
  Sender: FDA-Public Use
  Company Number: US-APOTEX-2020AP020838

PATIENT
  Age: 35 Year
  Sex: Female

DRUGS (1)
  1. LITHIUM CARBONATE. [Suspect]
     Active Substance: LITHIUM CARBONATE
     Indication: PRODUCT USED FOR UNKNOWN INDICATION
     Dosage: UNK
     Route: 065

REACTIONS (3)
  - Altered state of consciousness [Unknown]
  - Toxicity to various agents [Unknown]
  - Renal failure [Fatal]
